FAERS Safety Report 7324485-6 (Version None)
Quarter: 2011Q1

REPORT INFORMATION
  Report Type: 
  Country: None (occurrence: None)
  Receive Date: 20110203
  Receipt Date: 20100706
  Transmission Date: 20110831
  Serious: Yes (Other)
  Sender: FDA-Public Use
  Company Number: 015221

PATIENT

DRUGS (1)
  1. KEPPRA [Suspect]

REACTIONS (3)
  - AFFECT LABILITY [None]
  - SUICIDAL IDEATION [None]
  - OVERDOSE [None]
